FAERS Safety Report 9342597 (Version 1)
Quarter: 2013Q2

REPORT INFORMATION
  Report Type: Spontaneous
  Country: US (occurrence: None)
  Receive Date: 20130607
  Receipt Date: 20130607
  Transmission Date: 20140414
  Serious: Yes (Death)
  Sender: FDA-Public Use
  Company Number: 2013CT000046

PATIENT
  Age: 62 Year
  Sex: Male
  Weight: 74 kg

DRUGS (9)
  1. KORLYM [Suspect]
     Indication: CUSHING^S SYNDROME
     Route: 048
     Dates: start: 20130312
  2. TRIAMTERENE [Concomitant]
  3. DRONABINOL [Concomitant]
  4. PANTOPRAZOLE [Concomitant]
  5. OXYCODONE [Concomitant]
  6. LORAZEPAM [Concomitant]
  7. SENNA [Concomitant]
  8. CALCIFEROL [Concomitant]
  9. CALCIUM [Concomitant]

REACTIONS (1)
  - Death [None]
